FAERS Safety Report 8295898-3 (Version None)
Quarter: 2012Q2

REPORT INFORMATION
  Report Type: 
  Country: None (occurrence: None)
  Receive Date: 20120418
  Receipt Date: 20120412
  Transmission Date: 20120825
  Serious: Yes (Other)
  Sender: FDA-Public Use
  Company Number: US-PFIZER INC-2012092234

PATIENT
  Sex: Female
  Weight: 63.5 kg

DRUGS (2)
  1. LYRICA [Suspect]
     Indication: FIBROMYALGIA
     Dosage: 100 MG, 2X/DAY
     Route: 048
  2. FLEXERIL [Concomitant]
     Indication: MUSCLE SPASMS
     Dosage: UNK

REACTIONS (4)
  - HIP FRACTURE [None]
  - PELVIC FRACTURE [None]
  - ACCIDENT [None]
  - HYPOAESTHESIA [None]
